FAERS Safety Report 19782923 (Version 3)
Quarter: 2021Q4

REPORT INFORMATION
  Report Type: Spontaneous
  Country: JP (occurrence: JP)
  Receive Date: 20210902
  Receipt Date: 20211020
  Transmission Date: 20220303
  Serious: Yes (Death, Life-Threatening, Hospitalization, Other)
  Sender: FDA-Public Use
  Company Number: JP-KYOWAKIRIN-2021AKK014181

PATIENT

DRUGS (83)
  1. POTELIGEO [Suspect]
     Active Substance: MOGAMULIZUMAB-KPKC
     Indication: Adult T-cell lymphoma/leukaemia
     Dosage: 40 MG, QD
     Route: 041
     Dates: start: 20210728, end: 20210728
  2. POTELIGEO [Suspect]
     Active Substance: MOGAMULIZUMAB-KPKC
     Dosage: 40 MG, 1X/2 WEEKS
     Route: 041
     Dates: start: 20210309, end: 20210323
  3. POTELIGEO [Suspect]
     Active Substance: MOGAMULIZUMAB-KPKC
     Dosage: 40 MG, QD
     Route: 041
     Dates: start: 20210414, end: 20210414
  4. POTELIGEO [Suspect]
     Active Substance: MOGAMULIZUMAB-KPKC
     Dosage: 40 MG, 1X/4 WEEKS
     Route: 041
     Dates: start: 20210519, end: 20210617
  5. CYCLOPHOSPHAMIDE [Concomitant]
     Active Substance: CYCLOPHOSPHAMIDE
     Indication: Adult T-cell lymphoma/leukaemia
     Dosage: UNK
     Route: 065
  6. DOXORUBICIN HYDROCHLORIDE [Concomitant]
     Active Substance: DOXORUBICIN HYDROCHLORIDE
     Indication: Adult T-cell lymphoma/leukaemia
     Dosage: UNK
     Route: 065
  7. VINCRISTINE SULFATE [Concomitant]
     Active Substance: VINCRISTINE SULFATE
     Indication: Adult T-cell lymphoma/leukaemia
     Dosage: UNK
     Route: 065
  8. PREDNISOLONE [Concomitant]
     Active Substance: PREDNISOLONE
     Indication: Adult T-cell lymphoma/leukaemia
     Dosage: UNK
     Route: 065
  9. PREDNISOLONE [Concomitant]
     Active Substance: PREDNISOLONE
     Dosage: 60 MG
     Route: 065
     Dates: start: 20210809
  10. PREDNISOLONE [Concomitant]
     Active Substance: PREDNISOLONE
     Dosage: 50 MG
     Route: 065
     Dates: start: 20210811
  11. PREDNISOLONE [Concomitant]
     Active Substance: PREDNISOLONE
     Dosage: 40 MG
     Route: 065
     Dates: start: 20210815
  12. ACETAMINOPHEN [Concomitant]
     Active Substance: ACETAMINOPHEN
     Indication: Adult T-cell lymphoma/leukaemia
     Dosage: UNK
     Route: 065
  13. PREDNISOLONE SODIUM SUCCINATE [Concomitant]
     Active Substance: PREDNISOLONE SODIUM SUCCINATE
     Indication: Adult T-cell lymphoma/leukaemia
     Dosage: 70 MG
     Route: 065
  14. PREDNISOLONE SODIUM SUCCINATE [Concomitant]
     Active Substance: PREDNISOLONE SODIUM SUCCINATE
     Dosage: 40 MG, QD
     Route: 065
     Dates: start: 20210726, end: 20210730
  15. PREDNISOLONE SODIUM SUCCINATE [Concomitant]
     Active Substance: PREDNISOLONE SODIUM SUCCINATE
     Dosage: 10 MG, QD
     Route: 065
     Dates: start: 20210726, end: 20210730
  16. PREDNISOLONE SODIUM SUCCINATE [Concomitant]
     Active Substance: PREDNISOLONE SODIUM SUCCINATE
     Dosage: 20 MG, QD
     Route: 065
     Dates: start: 20210726, end: 20210730
  17. PREDNISOLONE SODIUM SUCCINATE [Concomitant]
     Active Substance: PREDNISOLONE SODIUM SUCCINATE
     Dosage: 40 MG, QD
     Route: 065
     Dates: start: 20210817, end: 20210819
  18. SULFAMETHOXAZOLE\TRIMETHOPRIM [Concomitant]
     Active Substance: SULFAMETHOXAZOLE\TRIMETHOPRIM
     Dosage: 1 DF, QD , AFTER BREAKFAST
     Route: 048
     Dates: start: 20210726, end: 20210803
  19. MAGNESIUM OXIDE [Concomitant]
     Active Substance: MAGNESIUM OXIDE
     Dosage: 660 MG, BID, AFTER BREAKFAST AND LUNCH
     Route: 048
     Dates: start: 20210727, end: 20210727
  20. MAGNESIUM OXIDE [Concomitant]
     Active Substance: MAGNESIUM OXIDE
     Dosage: 660 MG, QD, AFTER DINNER
     Route: 048
     Dates: start: 20210728, end: 20210728
  21. MAGNESIUM OXIDE [Concomitant]
     Active Substance: MAGNESIUM OXIDE
     Dosage: 660 MG, QD, AFTER DINNER
     Route: 048
     Dates: start: 20210731, end: 20210731
  22. MAGNESIUM OXIDE [Concomitant]
     Active Substance: MAGNESIUM OXIDE
     Dosage: 660 MG, TID, AFTER BREAKFAST,  LUNCH AND DINNER
     Route: 048
     Dates: start: 20210801, end: 20210802
  23. MAGNESIUM OXIDE [Concomitant]
     Active Substance: MAGNESIUM OXIDE
     Dosage: 660 MG, BID , AFTER BREAKFAST AND LUNCH
     Route: 048
     Dates: start: 20210803, end: 20210803
  24. FAMOTIDINE [Concomitant]
     Active Substance: FAMOTIDINE
     Dosage: 20 MG, QD , AFTER BREAKFAST
     Route: 048
     Dates: start: 20210726, end: 20210802
  25. CALONAL [Concomitant]
     Active Substance: ACETAMINOPHEN
     Dosage: 2 DF, BID AFTER LUNCH AND DINNER
     Route: 048
     Dates: start: 20210726, end: 20210728
  26. CALONAL [Concomitant]
     Active Substance: ACETAMINOPHEN
     Dosage: 2 DF, QID, RIGHT AFTER WAKING UP, AFTER LUNCH, DINNER AND BEFORE BEDTIME
     Route: 048
     Dates: start: 20210729, end: 20210802
  27. CALONAL [Concomitant]
     Active Substance: ACETAMINOPHEN
     Dosage: 2 DF, BID, RIGHT AFTER WAKING UP AND AFTER LUNCH
     Route: 048
     Dates: start: 20210803, end: 20210803
  28. FUNGIZONE [Concomitant]
     Active Substance: AMPHOTERICIN B
     Dosage: 100 MG/ML, BID
     Route: 048
     Dates: start: 20210727, end: 20210727
  29. FUNGIZONE [Concomitant]
     Active Substance: AMPHOTERICIN B
     Dosage: 100 MG/ML, QID, AFTER MORNING, LUNCH, DINNER AND BEFORE BEDTIME
     Route: 048
     Dates: start: 20210728, end: 20210802
  30. FUNGIZONE [Concomitant]
     Active Substance: AMPHOTERICIN B
     Dosage: 100 MG/ML, BID
     Route: 048
     Dates: start: 20210802, end: 20210802
  31. FUNGIZONE [Concomitant]
     Active Substance: AMPHOTERICIN B
     Dosage: 100 MG/ML, QD, AFTER BREAKFAST
     Route: 048
     Dates: start: 20210803, end: 20210803
  32. OXYCODONE [Concomitant]
     Active Substance: OXYCODONE
     Dosage: UNK UNK, QD
     Route: 065
     Dates: start: 20210806, end: 20210806
  33. ACETAMINOPHEN [Concomitant]
     Active Substance: ACETAMINOPHEN
     Dosage: 500 MG, QD
     Route: 042
     Dates: start: 20210726, end: 20210726
  34. ACETAMINOPHEN [Concomitant]
     Active Substance: ACETAMINOPHEN
     Dosage: 500 MG, QD
     Route: 042
     Dates: start: 20210728, end: 20210728
  35. ACETAMINOPHEN [Concomitant]
     Active Substance: ACETAMINOPHEN
     Dosage: 1000 MG, QD
     Route: 042
     Dates: start: 20210806, end: 20210806
  36. CEFEPIME HYDROCHLORIDE [Concomitant]
     Active Substance: CEFEPIME HYDROCHLORIDE
     Dosage: 2 G, BID
     Route: 042
     Dates: start: 20210726, end: 20210802
  37. CEFEPIME HYDROCHLORIDE [Concomitant]
     Active Substance: CEFEPIME HYDROCHLORIDE
     Dosage: 2 G, QD
     Route: 042
     Dates: start: 20210803, end: 20210803
  38. CEFEPIME HYDROCHLORIDE [Concomitant]
     Active Substance: CEFEPIME HYDROCHLORIDE
     Dosage: 2 G, QD
     Route: 042
     Dates: start: 20210806, end: 20210806
  39. CEFEPIME HYDROCHLORIDE [Concomitant]
     Active Substance: CEFEPIME HYDROCHLORIDE
     Dosage: 2 G, BID
     Route: 042
     Dates: start: 20210807, end: 20210809
  40. CEFEPIME HYDROCHLORIDE [Concomitant]
     Active Substance: CEFEPIME HYDROCHLORIDE
     Dosage: 2 G, QD
     Route: 042
     Dates: start: 20210810, end: 20210810
  41. CEFEPIME HYDROCHLORIDE [Concomitant]
     Active Substance: CEFEPIME HYDROCHLORIDE
     Dosage: 2 G, BID
     Route: 042
     Dates: start: 20210811, end: 20210815
  42. CEFEPIME HYDROCHLORIDE [Concomitant]
     Active Substance: CEFEPIME HYDROCHLORIDE
     Dosage: 2 G, QD
     Route: 042
     Dates: start: 20210816, end: 20210818
  43. SOLDEM 3A [Concomitant]
     Active Substance: CARBOHYDRATES\POTASSIUM CHLORIDE\SODIUM CHLORIDE\SODIUM LACTATE
     Dosage: 500 ML, QD
     Route: 065
     Dates: start: 20210726, end: 20210802
  44. SOLDEM 3A [Concomitant]
     Active Substance: CARBOHYDRATES\POTASSIUM CHLORIDE\SODIUM CHLORIDE\SODIUM LACTATE
     Dosage: 500 ML, QD
     Route: 065
     Dates: start: 20210807, end: 20210818
  45. SOLDEM 3A [Concomitant]
     Active Substance: CARBOHYDRATES\POTASSIUM CHLORIDE\SODIUM CHLORIDE\SODIUM LACTATE
     Dosage: 500 ML, BID
     Route: 065
     Dates: start: 20210819, end: 20210819
  46. VONOPRAZAN FUMARATE [Concomitant]
     Active Substance: VONOPRAZAN FUMARATE
     Dosage: 20 MG, QD, AFTER DINNER
     Route: 048
     Dates: start: 20210729, end: 20210729
  47. VONOPRAZAN FUMARATE [Concomitant]
     Active Substance: VONOPRAZAN FUMARATE
     Dosage: 20 MG, QD, AFTER BREAKFAST
     Route: 048
     Dates: start: 20210730, end: 20210803
  48. ALLOID G [Concomitant]
     Active Substance: SODIUM ALGINATE
     Dosage: 60 ML, BID
     Route: 048
     Dates: start: 20210730, end: 20210730
  49. ALLOID G [Concomitant]
     Active Substance: SODIUM ALGINATE
     Dosage: 60 ML, TID, BEFORE BREAKFAST, LUNCH AND DINNER
     Route: 048
     Dates: start: 20210731, end: 20210802
  50. ALLOID G [Concomitant]
     Active Substance: SODIUM ALGINATE
     Dosage: 60 ML, BID, BEFORE BREAKFAST AND LUNCH
     Route: 048
     Dates: start: 20210803, end: 20210803
  51. POTASSIUM CHLORIDE [Concomitant]
     Active Substance: POTASSIUM CHLORIDE
     Dosage: 600 MG, QD
     Route: 048
     Dates: start: 20210802, end: 20210802
  52. POTASSIUM CHLORIDE [Concomitant]
     Active Substance: POTASSIUM CHLORIDE
     Dosage: 600 MG, QD, AFTER BREAKFAST
     Route: 048
     Dates: start: 20210803, end: 20210803
  53. VANCOMYCIN HYDROCHLORIDE [Concomitant]
     Active Substance: VANCOMYCIN HYDROCHLORIDE
     Dosage: 0.25 G, BID
     Route: 041
     Dates: start: 20210726, end: 20210726
  54. VANCOMYCIN HYDROCHLORIDE [Concomitant]
     Active Substance: VANCOMYCIN HYDROCHLORIDE
     Dosage: 0.5 G, QD
     Route: 041
     Dates: start: 20210727, end: 20210730
  55. VANCOMYCIN HYDROCHLORIDE [Concomitant]
     Active Substance: VANCOMYCIN HYDROCHLORIDE
     Dosage: 0.25 G, QD
     Route: 041
     Dates: start: 20210801, end: 20210803
  56. VANCOMYCIN HYDROCHLORIDE [Concomitant]
     Active Substance: VANCOMYCIN HYDROCHLORIDE
     Dosage: 0.375 G, QD
     Route: 041
     Dates: start: 20210806, end: 20210808
  57. OMEPRAZOLE [Concomitant]
     Active Substance: OMEPRAZOLE
     Dosage: 20 MG, BID
     Route: 065
     Dates: start: 20210726, end: 20210727
  58. OMEPRAZOLE [Concomitant]
     Active Substance: OMEPRAZOLE
     Dosage: 20 MG, QD
     Route: 065
     Dates: start: 20210728, end: 20210728
  59. OMEPRAZOLE [Concomitant]
     Active Substance: OMEPRAZOLE
     Dosage: 20 MG, QD
     Route: 065
     Dates: start: 20210806, end: 20210806
  60. OMEPRAZOLE [Concomitant]
     Active Substance: OMEPRAZOLE
     Dosage: 20 MG, BID
     Route: 065
     Dates: start: 20210807, end: 20210809
  61. OMEPRAZOLE [Concomitant]
     Active Substance: OMEPRAZOLE
     Dosage: 20 MG, QD
     Route: 065
     Dates: start: 20210810, end: 20210810
  62. OMEPRAZOLE [Concomitant]
     Active Substance: OMEPRAZOLE
     Dosage: 20 MG, BID
     Route: 065
     Dates: start: 20210811, end: 20210817
  63. OMEPRAZOLE [Concomitant]
     Active Substance: OMEPRAZOLE
     Dosage: 20 MG, QD
     Route: 065
     Dates: start: 20210818, end: 20210818
  64. HYDROCORTONE [HYDROCORTISONE ACETATE] [Concomitant]
     Dosage: 100 MG, QD
     Route: 065
     Dates: start: 20210728, end: 20210728
  65. HYDROCORTONE [HYDROCORTISONE ACETATE] [Concomitant]
     Dosage: 100 MG, QD
     Route: 065
     Dates: start: 20210816, end: 20210816
  66. POLARAMINE [Concomitant]
     Active Substance: DEXCHLORPHENIRAMINE MALEATE
     Dosage: 5 MG, QD
     Route: 065
     Dates: start: 20210728, end: 20210728
  67. POLARAMINE [Concomitant]
     Active Substance: DEXCHLORPHENIRAMINE MALEATE
     Dosage: 5 MG, QD
     Route: 065
     Dates: start: 20210816, end: 20210816
  68. MIDAZOLAM HYDROCHLORIDE [Concomitant]
     Active Substance: MIDAZOLAM HYDROCHLORIDE
     Dosage: 10 MG, QD
     Route: 065
     Dates: start: 20210730, end: 20210730
  69. FENTANYL [Concomitant]
     Active Substance: FENTANYL
     Dosage: 0.5 MG, QD
     Route: 065
     Dates: start: 20210806, end: 20210806
  70. FENTANYL [Concomitant]
     Active Substance: FENTANYL
     Dosage: 0.5 MG, QD
     Route: 065
     Dates: start: 20210808, end: 20210808
  71. FENTANYL [Concomitant]
     Active Substance: FENTANYL
     Dosage: 0.5 MG, QD
     Route: 065
     Dates: start: 20210811, end: 20210811
  72. FENTANYL [Concomitant]
     Active Substance: FENTANYL
     Dosage: 0.5 MG, QD
     Route: 065
     Dates: start: 20210813, end: 20210813
  73. FENTANYL [Concomitant]
     Active Substance: FENTANYL
     Dosage: 0.5 MG, QD
     Route: 065
     Dates: start: 20210815, end: 20210815
  74. FENTANYL [Concomitant]
     Active Substance: FENTANYL
     Dosage: 0.5 MG, QD
     Route: 065
     Dates: start: 20210817, end: 20210817
  75. FENTANYL [Concomitant]
     Active Substance: FENTANYL
     Dosage: 0.5 MG, QD
     Route: 065
     Dates: start: 20210819, end: 20210819
  76. NOREPINEPHRINE [Concomitant]
     Active Substance: NOREPINEPHRINE
     Dosage: 3 MG, QD
     Route: 065
     Dates: start: 20210818, end: 20210819
  77. SOLU-MEDROL [Concomitant]
     Active Substance: METHYLPREDNISOLONE SODIUM SUCCINATE
     Dosage: 1000 MG, QD
     Route: 042
     Dates: start: 20210806, end: 20210808
  78. HUMULIN R [Concomitant]
     Active Substance: INSULIN HUMAN
     Dosage: 200 IU, BID
     Route: 065
     Dates: start: 20210807, end: 20210807
  79. HUMULIN R [Concomitant]
     Active Substance: INSULIN HUMAN
     Dosage: 1000 IU, QD
     Route: 065
     Dates: start: 20210816, end: 20210816
  80. DEXTROSE [Concomitant]
     Active Substance: DEXTROSE
     Dosage: 10 ML, QD
     Route: 065
     Dates: start: 20210816, end: 20210816
  81. DEXTROSE [Concomitant]
     Active Substance: DEXTROSE
     Dosage: 40 ML, QD
     Route: 065
     Dates: start: 20210816, end: 20210818
  82. DEXTROSE [Concomitant]
     Active Substance: DEXTROSE
     Dosage: 500 ML, QD
     Route: 065
     Dates: start: 20210816, end: 20210816
  83. DEXTROSE [Concomitant]
     Active Substance: DEXTROSE
     Dosage: 100 ML, QD
     Route: 065
     Dates: start: 20210819, end: 20210819

REACTIONS (2)
  - Condition aggravated [Fatal]
  - Toxic epidermal necrolysis [Fatal]

NARRATIVE: CASE EVENT DATE: 20210805
